FAERS Safety Report 4861636-7 (Version None)
Quarter: 2005Q4

REPORT INFORMATION
  Report Type: 
  Country: None (occurrence: None)
  Receive Date: 20051130
  Receipt Date: 20050415
  Transmission Date: 20060501
  Serious: Yes (Other)
  Sender: FDA-Public Use
  Company Number: 200510668BWH

PATIENT
  Age: 81 Year
  Sex: Female

DRUGS (4)
  1. CIPRO [Suspect]
     Indication: STAPHYLOCOCCAL INFECTION
     Dosage: 500 MG, BID, ORAL
     Route: 048
     Dates: start: 20050301
  2. OXYCONTIN [Concomitant]
  3. CHEMO THERAPY THAT STARTS WITH N [Concomitant]
  4. NORMODYNE [Concomitant]

REACTIONS (3)
  - CONVULSION [None]
  - DYSPHAGIA [None]
  - DYSPNOEA [None]
